FAERS Safety Report 26213168 (Version 1)
Quarter: 2025Q4

REPORT INFORMATION
  Report Type: Spontaneous
  Country: US (occurrence: US)
  Receive Date: 20251230
  Receipt Date: 20251230
  Transmission Date: 20260118
  Serious: Yes (Life-Threatening, Hospitalization)
  Sender: MYLAN
  Company Number: US-MYLANLABS-2025M1110666

PATIENT
  Age: 40 Year
  Sex: Male

DRUGS (1)
  1. METHADONE [Suspect]
     Active Substance: METHADONE HYDROCHLORIDE
     Indication: Drug use disorder
     Dosage: 190 MILLIGRAM, QD

REACTIONS (5)
  - Respiratory failure [Unknown]
  - Serotonin syndrome [Unknown]
  - Torsade de pointes [Recovering/Resolving]
  - Toxicity to various agents [Unknown]
  - Brain hypoxia [Unknown]
